FAERS Safety Report 4591679-2 (Version None)
Quarter: 2005Q1

REPORT INFORMATION
  Report Type: 
  Country: None (occurrence: None)
  Receive Date: 20050218
  Receipt Date: 20050208
  Transmission Date: 20050727
  Serious: No
  Sender: FDA-Public Use
  Company Number: 2004UW23985

PATIENT
  Age: 32 Year
  Sex: Female
  Weight: 57.8 kg

DRUGS (3)
  1. RISPERIDONE [Suspect]
     Indication: SCHIZOAFFECTIVE DISORDER
     Dosage: 1MG BID PO
     Route: 048
     Dates: start: 20041005, end: 20041115
  2. BUPROPION HCL [Concomitant]
  3. AMBIEN [Concomitant]

REACTIONS (2)
  - DRUG INEFFECTIVE [None]
  - SUICIDAL IDEATION [None]
